FAERS Safety Report 8074130-X (Version None)
Quarter: 2012Q1

REPORT INFORMATION
  Report Type: 
  Country: None (occurrence: None)
  Receive Date: 20120126
  Receipt Date: 20120120
  Transmission Date: 20120608
  Serious: Yes (Hospitalization, Other)
  Sender: FDA-Public Use
  Company Number: US-BAYER-2012-007356

PATIENT
  Age: 52 Year
  Sex: Female
  Weight: 49.9 kg

DRUGS (13)
  1. BLINDED SORAFENIB (RAF KINASE INHIBITOR) [Suspect]
     Indication: LUNG NEOPLASM MALIGNANT
     Dosage: 200 MG, BID
     Dates: start: 20120111, end: 20120118
  2. MORPHINE SULFATE [Concomitant]
     Dosage: UNK
     Dates: start: 20111221
  3. NITROGLYCERIN [Concomitant]
     Dosage: UNK
     Dates: start: 20111129
  4. NEUTONIN [Concomitant]
     Dosage: UNK
     Dates: start: 20110209
  5. PEPCID [Concomitant]
     Dosage: UNK
     Dates: start: 20120118
  6. MAGONATE [Concomitant]
     Dosage: UNK
     Dates: start: 20111228
  7. ALBUTEROL [Concomitant]
     Dosage: UNK
     Dates: start: 20111215
  8. POTASSIUM CHLORIDE [Concomitant]
     Dosage: UNK
     Dates: start: 20111221
  9. AGGRENOX [Concomitant]
     Dosage: UNK
     Dates: start: 20100319
  10. ALBUTEROL [Concomitant]
     Dosage: UNK
     Dates: start: 20100406
  11. CHANTIX [Concomitant]
     Dosage: UNK
     Dates: start: 20111202
  12. PANOBINOSTAT [Suspect]
     Indication: LUNG NEOPLASM MALIGNANT
     Dosage: 20 MG, QD
     Route: 048
     Dates: start: 20120111, end: 20120118
  13. METFORMIN HCL [Concomitant]
     Dosage: UNK
     Dates: start: 20111208

REACTIONS (9)
  - DIARRHOEA [None]
  - VOMITING [None]
  - NAUSEA [None]
  - CONSTIPATION [None]
  - SUPRAVENTRICULAR TACHYCARDIA [None]
  - FEELING COLD [None]
  - HYPONATRAEMIA [None]
  - SHOCK [None]
  - RETCHING [None]
